FAERS Safety Report 18650333 (Version 1)
Quarter: 2020Q4

REPORT INFORMATION
  Report Type: Report from Study
  Country: AR (occurrence: AR)
  Receive Date: 20201222
  Receipt Date: 20201222
  Transmission Date: 20210114
  Serious: Yes (Other)
  Sender: FDA-Public Use
  Company Number: NVSC2020AR319662

PATIENT
  Sex: Female

DRUGS (7)
  1. INSULINE [Concomitant]
     Active Substance: INSULIN NOS
     Indication: TYPE 2 DIABETES MELLITUS
     Dosage: UNK
     Route: 065
     Dates: start: 2013
  2. CARVEDILOL. [Concomitant]
     Active Substance: CARVEDILOL
     Indication: HYPERTENSION
     Dosage: UNK (MANY YEARS AGO (PREVIOUS TO 2014))
     Route: 065
  3. T4 [Concomitant]
     Active Substance: LEVOTHYROXINE
     Indication: HYPOTHYROIDISM
     Dosage: UNK (SINCE MANY YEARS AGO PREVIOUS TO 2014)
     Route: 065
  4. TASIGNA [Suspect]
     Active Substance: NILOTINIB
     Indication: CHRONIC MYELOID LEUKAEMIA
     Dosage: 200 MG, BID
     Route: 065
     Dates: start: 20140801, end: 202003
  5. LOTRIAL [Concomitant]
     Active Substance: ENALAPRIL MALEATE
     Indication: HYPERTENSION
     Dosage: UNK  (MANY YEARS AGO (PREVIOUS TO 2014))
     Route: 065
  6. METFORMIN [Concomitant]
     Active Substance: METFORMIN HYDROCHLORIDE
     Indication: TYPE 2 DIABETES MELLITUS
     Dosage: UNK (MANY YEARS AGO (PREVIOUS TO 2014))
     Route: 065
  7. GLUCOSAMINE;POTASSIUM [Concomitant]
     Indication: RHEUMATOID ARTHRITIS
     Dosage: UNK
     Route: 065
     Dates: start: 2010

REACTIONS (3)
  - Diabetes mellitus [Unknown]
  - Hyperglycaemia [Unknown]
  - Incorrect dose administered [Unknown]
